FAERS Safety Report 6609201-5 (Version None)
Quarter: 2010Q1

REPORT INFORMATION
  Report Type: 
  Country: None (occurrence: None)
  Receive Date: 20100301
  Receipt Date: 20100217
  Transmission Date: 20100710
  Serious: Yes (Hospitalization)
  Sender: FDA-Public Use
  Company Number: JP-AMGEN-US394822

PATIENT
  Age: 69 Year
  Sex: Female

DRUGS (3)
  1. ENBREL [Suspect]
     Indication: RHEUMATOID ARTHRITIS
     Route: 058
     Dates: start: 20060202, end: 20060313
  2. ENBREL [Suspect]
     Route: 056
     Dates: start: 20060401, end: 20060523
  3. PARAMETHASONE ACETATE [Concomitant]
     Route: 048

REACTIONS (8)
  - ABSCESS [None]
  - ARTHRALGIA [None]
  - CONDITION AGGRAVATED [None]
  - INFECTIVE SPONDYLITIS [None]
  - MUSCLE ABSCESS [None]
  - PNEUMONIA [None]
  - PSEUDOMONAS INFECTION [None]
  - STAPHYLOCOCCAL SEPSIS [None]
